FAERS Safety Report 25869196 (Version 1)
Quarter: 2025Q4

REPORT INFORMATION
  Report Type: Spontaneous
  Country: US (occurrence: US)
  Receive Date: 20251001
  Receipt Date: 20251001
  Transmission Date: 20260118
  Serious: Yes (Other)
  Sender: GLENMARK
  Company Number: US-NAPPMUNDI-GBR-2025-0125165

PATIENT
  Age: 69 Year
  Sex: Male

DRUGS (5)
  1. GABAPENTIN [Suspect]
     Active Substance: GABAPENTIN
     Indication: Pain
     Dosage: 1800 MILLIGRAM, QD (1800 MILLIGRAM, DAILY  )
     Route: 065
  2. MORPHINE SULFATE [Suspect]
     Active Substance: MORPHINE SULFATE
     Indication: Pain
     Dosage: 90 MILLIGRAM, QD (90 MILLIGRAM, DAILY0
     Route: 065
  3. ACETAMINOPHEN\HYDROCODONE [Suspect]
     Active Substance: ACETAMINOPHEN\HYDROCODONE
     Indication: Pain
     Dosage: UNK UNK, TID (10-325 MG THREE TIMES DAILY)
     Route: 065
  4. MEGESTROL ACETATE [Suspect]
     Active Substance: MEGESTROL ACETATE
     Indication: Pain
     Dosage: 400 MILLIGRAM, QD (400 MILLIGRAM, DAILY)
     Route: 065
  5. MEGESTROL ACETATE [Suspect]
     Active Substance: MEGESTROL ACETATE
     Dosage: UNK, WEANED BY 50% PER MONTH OVER THREE MONTHS.
     Route: 065

REACTIONS (5)
  - Adrenal insufficiency [Recovered/Resolved]
  - Cortisol decreased [Unknown]
  - Blood testosterone decreased [Not Recovered/Not Resolved]
  - Hypogonadism [Unknown]
  - Fatigue [Recovering/Resolving]
